FAERS Safety Report 9475661 (Version 1)
Quarter: 2013Q3

REPORT INFORMATION
  Report Type: Report from Study
  Country: BR (occurrence: BR)
  Receive Date: 20130826
  Receipt Date: 20130826
  Transmission Date: 20140515
  Serious: Yes (Other)
  Sender: FDA-Public Use
  Company Number: PHHY2013BR091732

PATIENT
  Sex: Female

DRUGS (1)
  1. DIOVAN AMLO FIX [Suspect]
     Indication: HYPERTENSION
     Dosage: 1 DF, (320 MG VALSA/05 MG AMLO) IN THE MORNING
     Dates: start: 201305

REACTIONS (2)
  - Cataract [Recovering/Resolving]
  - Blood pressure increased [Recovering/Resolving]
